FAERS Safety Report 7029033-6 (Version None)
Quarter: 2010Q4

REPORT INFORMATION
  Report Type: 
  Country: None (occurrence: None)
  Receive Date: 20101005
  Receipt Date: 20100930
  Transmission Date: 20110411
  Serious: Yes (Hospitalization)
  Sender: FDA-Public Use
  Company Number: A0884648A

PATIENT
  Age: 60 Year
  Sex: Female

DRUGS (2)
  1. AVANDIA [Suspect]
     Indication: DIABETES MELLITUS
     Dosage: 8MG TWICE PER DAY
     Route: 048
  2. AVANDAMET [Suspect]
     Route: 048
     Dates: end: 20090316

REACTIONS (6)
  - ASTHMA [None]
  - CARDIAC FAILURE CONGESTIVE [None]
  - HYPERTENSION [None]
  - PULMONARY HYPERTENSION [None]
  - RENAL FAILURE [None]
  - SLEEP APNOEA SYNDROME [None]
